FAERS Safety Report 7693218-6 (Version None)
Quarter: 2011Q3

REPORT INFORMATION
  Report Type: 
  Country: None (occurrence: None)
  Receive Date: 20110816
  Receipt Date: 20110808
  Transmission Date: 20111222
  Serious: Yes (Other)
  Sender: FDA-Public Use
  Company Number: JHP201100386

PATIENT
  Age: 51 Year
  Sex: Male

DRUGS (7)
  1. COLY-MYCIN M [Suspect]
     Indication: ESCHERICHIA INFECTION
     Dosage: 3 MILLION IU, TID
  2. TIGECYCLINE (TIGECYCLINE) [Concomitant]
  3. MEROPENEM [Suspect]
     Indication: PATHOGEN RESISTANCE
     Dosage: 1 G EVERY 8 HOURS AS A CONTINUOUS INFUSION OVER 3 HOURS, INTRAVENOUS
     Route: 042
  4. CLINDAMYCIN (CLINDAMYCIN PHOSPHATE) [Concomitant]
  5. VANCOMYCIN [Concomitant]
  6. CIPROFLOXACIN (CIPROFLOXACIN HYDROCHLORIDE) [Concomitant]
  7. TIGECYCLINE (TIGECYCLINE) [Concomitant]

REACTIONS (11)
  - PNEUMONIA [None]
  - NEUROTOXICITY [None]
  - NEUROMUSCULAR BLOCKADE [None]
  - CONTINUOUS HAEMODIAFILTRATION [None]
  - CONVULSION [None]
  - APNOEA [None]
  - DRUG INTERACTION [None]
  - FUNGAL SEPSIS [None]
  - SHOCK [None]
  - CARDIOVASCULAR DISORDER [None]
  - RESPIRATORY PARALYSIS [None]
